FAERS Safety Report 7486881-6 (Version None)
Quarter: 2011Q2

REPORT INFORMATION
  Report Type: 
  Country: None (occurrence: None)
  Receive Date: 20110517
  Receipt Date: 20110510
  Transmission Date: 20111010
  Serious: Yes (Hospitalization)
  Sender: FDA-Public Use
  Company Number: US-US-EMD SERONO, INC.-7059012

PATIENT
  Sex: Female

DRUGS (1)
  1. REBIF [Suspect]
     Indication: MULTIPLE SCLEROSIS
     Route: 058
     Dates: start: 20090926

REACTIONS (6)
  - INJECTION SITE PRURITUS [None]
  - FALL [None]
  - RIB FRACTURE [None]
  - LIMB DISCOMFORT [None]
  - INJECTION SITE DISCOLOURATION [None]
  - BREATH SOUNDS ABNORMAL [None]
